FAERS Safety Report 11939797 (Version 2)
Quarter: 2017Q1

REPORT INFORMATION
  Report Type: Spontaneous
  Country: US (occurrence: US)
  Receive Date: 20160122
  Receipt Date: 20170123
  Transmission Date: 20170428
  Serious: Yes (Other)
  Sender: FDA-Public Use
  Company Number: US-PURDUE PHARMA-USA-2015-0126934

PATIENT
  Sex: Female

DRUGS (1)
  1. HYDROMORPHONE HCL [Suspect]
     Active Substance: HYDROMORPHONE HYDROCHLORIDE
     Indication: PAIN
     Route: 065

REACTIONS (4)
  - Drug ineffective [Unknown]
  - Fatigue [Unknown]
  - Altered state of consciousness [Unknown]
  - Sedation [Unknown]
